FAERS Safety Report 7670944-6 (Version None)
Quarter: 2011Q3

REPORT INFORMATION
  Report Type: 
  Country: None (occurrence: None)
  Receive Date: 20110809
  Receipt Date: 20110805
  Transmission Date: 20111222
  Serious: No
  Sender: FDA-Public Use
  Company Number: US-PFIZER INC-2011179710

PATIENT
  Sex: Female

DRUGS (2)
  1. AMLODIPINE BESYLATE [Suspect]
     Dosage: 10 MG, 1X/DAY
  2. AMLODIPINE BESYLATE [Suspect]
     Dosage: 5 MG, 2X/DAY

REACTIONS (1)
  - HEADACHE [None]
